FAERS Safety Report 8115695-9 (Version None)
Quarter: 2011Q4

REPORT INFORMATION
  Report Type: 
  Country: None (occurrence: None)
  Receive Date: 20111227
  Receipt Date: 20110916
  Transmission Date: 20120403
  Serious: Yes (Other)
  Sender: FDA-Public Use
  Company Number: PHEH2011US01225

PATIENT
  Age: 49 Year
  Sex: Female
  Weight: 69.4 kg

DRUGS (9)
  1. GILENYA [Suspect]
     Dosage: 0.5 MG, EVERYDAY, ORAL
     Route: 048
  2. BUPROPION (BUOPROPION) [Concomitant]
  3. PROVIGIL [Concomitant]
  4. BACLOFEN [Concomitant]
  5. TOPIRAMATE [Concomitant]
  6. OXYBUTYNIN [Concomitant]
  7. VERAPAMIL [Concomitant]
  8. VITAMIN B12 [Concomitant]
  9. NEURONTIN [Concomitant]

REACTIONS (5)
  - FATIGUE [None]
  - SOMNOLENCE [None]
  - HEART RATE DECREASED [None]
  - HYPOAESTHESIA [None]
  - BALANCE DISORDER [None]
